FAERS Safety Report 8386729-1 (Version None)
Quarter: 2012Q2

REPORT INFORMATION
  Report Type: 
  Country: None (occurrence: None)
  Receive Date: 20120525
  Receipt Date: 20120126
  Transmission Date: 20120825
  Serious: Yes (Other)
  Sender: FDA-Public Use
  Company Number: GB-ASTRAZENECA-2011SE75245

PATIENT
  Age: 21 Year
  Sex: Male

DRUGS (7)
  1. MEROPENEM [Suspect]
     Route: 042
  2. MEROPENEM [Suspect]
     Route: 042
     Dates: start: 20110901
  3. MEROPENEM [Suspect]
     Route: 042
     Dates: start: 20110101
  4. CEFTAZIDIME [Concomitant]
  5. GENTAMICIN [Concomitant]
     Dates: start: 20111101
  6. CEFTAZIDIME [Concomitant]
     Dates: start: 20111101
  7. GENTAMICIN [Concomitant]

REACTIONS (4)
  - FEELING ABNORMAL [None]
  - PSYCHOTIC BEHAVIOUR [None]
  - AMNESIA [None]
  - MOOD SWINGS [None]
